FAERS Safety Report 9882653 (Version 1)
Quarter: 2014Q1

REPORT INFORMATION
  Report Type: Spontaneous
  Country: US (occurrence: US)
  Receive Date: 20140207
  Receipt Date: 20140207
  Transmission Date: 20141002
  Serious: Yes (Other)
  Sender: FDA-Public Use
  Company Number: CHPA2014US002220

PATIENT
  Age: 63 Year
  Sex: Male

DRUGS (1)
  1. CVS [Suspect]
     Indication: SMOKING CESSATION THERAPY
     Dosage: 21 MG, QD
     Route: 062
     Dates: start: 20140114, end: 20140127

REACTIONS (7)
  - Speech disorder [Recovered/Resolved]
  - Movement disorder [Recovered/Resolved]
  - Pyrexia [Unknown]
  - Sleep disorder [Not Recovered/Not Resolved]
  - Asthenia [Not Recovered/Not Resolved]
  - Abnormal dreams [Not Recovered/Not Resolved]
  - Vomiting [Recovered/Resolved]
